FAERS Safety Report 24048068 (Version 2)
Quarter: 2024Q4

REPORT INFORMATION
  Report Type: Spontaneous
  Country: CA (occurrence: CA)
  Receive Date: 20240703
  Receipt Date: 20241010
  Transmission Date: 20250114
  Serious: Yes (Death, Other)
  Sender: ABBVIE
  Company Number: CA-LUNDBECK-DKLU4000924

PATIENT
  Age: 25 Year
  Sex: Male

DRUGS (1)
  1. CITALOPRAM [Suspect]
     Active Substance: CITALOPRAM
     Indication: Anxiety
     Route: 065

REACTIONS (2)
  - Completed suicide [Fatal]
  - Suicidal ideation [Fatal]
